FAERS Safety Report 18794636 (Version 1)
Quarter: 2021Q1

REPORT INFORMATION
  Report Type: Spontaneous
  Country: US (occurrence: US)
  Receive Date: 20210127
  Receipt Date: 20210127
  Transmission Date: 20210419
  Serious: No
  Sender: FDA-Public Use
  Company Number: US-SA-2021SA025343

PATIENT
  Age: 58 Year
  Sex: Male

DRUGS (1)
  1. TOUJEO [Suspect]
     Active Substance: INSULIN GLARGINE
     Dosage: 70 IU, BID

REACTIONS (3)
  - Gait disturbance [Unknown]
  - Hip surgery [Unknown]
  - Inappropriate schedule of product administration [Unknown]
